FAERS Safety Report 10178508 (Version 1)
Quarter: 2014Q2

REPORT INFORMATION
  Report Type: Spontaneous
  Country: US (occurrence: None)
  Receive Date: 20140516
  Receipt Date: 20140516
  Transmission Date: 20141212
  Serious: Yes (Life-Threatening, Other)
  Sender: FDA-Public Use
  Company Number: None

PATIENT
  Age: 58 Year
  Sex: Male
  Weight: 74.84 kg

DRUGS (1)
  1. FENTYNAL [Suspect]
     Indication: PAIN
     Dosage: 1 PATCH EVERY 48 HRS APPLIED AS MEDICATED PATCH TO SKIN
     Dates: start: 20140201, end: 20140505

REACTIONS (5)
  - Gastrointestinal inflammation [None]
  - Toxicity to various agents [None]
  - Pain [None]
  - Diarrhoea [None]
  - Vomiting [None]
